FAERS Safety Report 7802823-5 (Version None)
Quarter: 2011Q4

REPORT INFORMATION
  Report Type: 
  Country: None (occurrence: None)
  Receive Date: 20111007
  Receipt Date: 20111005
  Transmission Date: 20120403
  Serious: Yes (Hospitalization, Disabling)
  Sender: FDA-Public Use
  Company Number: US-MERCK-1107USA03584

PATIENT
  Age: 61 Year
  Sex: Female

DRUGS (6)
  1. FOSAMAX [Suspect]
     Route: 048
     Dates: end: 20080101
  2. FOSAMAX PLUS D [Suspect]
     Route: 048
  3. PLAQUENIL [Concomitant]
     Indication: RHEUMATOID ARTHRITIS
     Route: 065
     Dates: start: 19950101
  4. FOSAMAX [Suspect]
     Indication: OSTEOPOROSIS
     Route: 048
     Dates: start: 19950101
  5. FOSAMAX [Suspect]
     Route: 048
     Dates: end: 20080101
  6. FOSAMAX [Suspect]
     Indication: PROPHYLAXIS
     Route: 048
     Dates: start: 19950101

REACTIONS (8)
  - BACK PAIN [None]
  - ARTHRALGIA [None]
  - BONE DISORDER [None]
  - SJOGREN'S SYNDROME [None]
  - FALL [None]
  - TOOTH EXTRACTION [None]
  - DEVICE FAILURE [None]
  - FEMUR FRACTURE [None]
